FAERS Safety Report 21635914 (Version 4)
Quarter: 2023Q1

REPORT INFORMATION
  Report Type: Report from Study
  Country: US (occurrence: US)
  Receive Date: 20221123
  Receipt Date: 20230201
  Transmission Date: 20230418
  Serious: Yes (Hospitalization, Other)
  Sender: FDA-Public Use
  Company Number: US-ABBVIE-4211502

PATIENT
  Age: 83 Year
  Sex: Female
  Weight: 97 kg

DRUGS (20)
  1. SKYRIZI [Suspect]
     Active Substance: RISANKIZUMAB-RZAA
     Indication: Psoriasis
     Route: 058
     Dates: start: 2022
  2. SKYRIZI [Suspect]
     Active Substance: RISANKIZUMAB-RZAA
     Indication: Psoriasis
  3. FUROSEMIDE [Concomitant]
     Active Substance: FUROSEMIDE
     Indication: Diuretic therapy
  4. PROLIA [Concomitant]
     Active Substance: DENOSUMAB
     Indication: Osteoporosis
  5. VALSARTAN [Concomitant]
     Active Substance: VALSARTAN
     Indication: Blood pressure management
  6. POTASSIUM [Concomitant]
     Active Substance: POTASSIUM
     Indication: Diuretic therapy
  7. RHOPRESSA [Concomitant]
     Active Substance: NETARSUDIL MESYLATE
     Indication: Glaucoma
  8. VITAMINS [Concomitant]
     Active Substance: VITAMINS
     Indication: Supplementation therapy
  9. HYDROCORTISONE [Concomitant]
     Active Substance: HYDROCORTISONE
     Indication: Addison^s disease
  10. PANTOPRAZOLE [Concomitant]
     Active Substance: PANTOPRAZOLE
     Indication: Gastrooesophageal reflux disease
  11. BETAMETHASONE DIPROPIONATE\CLOTRIMAZOLE [Concomitant]
     Active Substance: BETAMETHASONE DIPROPIONATE\CLOTRIMAZOLE
     Indication: Fungal infection
  12. TRAMADOL [Concomitant]
     Active Substance: TRAMADOL
     Indication: Back pain
  13. ESTRADIOL [Concomitant]
     Active Substance: ESTRADIOL
     Indication: Hormone therapy
  14. AMOXICILLIN [Concomitant]
     Active Substance: AMOXICILLIN
     Indication: Infection prophylaxis
  15. ESCITALOPRAM [Concomitant]
     Active Substance: ESCITALOPRAM OXALATE
     Indication: Anxiety
  16. LEVOTHYROXINE SODIUM [Concomitant]
     Active Substance: LEVOTHYROXINE SODIUM
     Indication: Hypothyroidism
  17. METOLAZONE [Concomitant]
     Active Substance: METOLAZONE
     Indication: Diuretic therapy
  18. FERRIC POLYSACCHARIDE COMPLEX [Concomitant]
     Active Substance: FERRIC POLYSACCHARIDE COMPLEX
     Indication: Mineral supplementation
  19. LABETALOL [Concomitant]
     Active Substance: LABETALOL\LABETALOL HYDROCHLORIDE
     Indication: Hypertension
  20. VITAMIN D [Concomitant]
     Active Substance: VITAMIN D NOS
     Indication: Supplementation therapy
     Dosage: DAILY

REACTIONS (9)
  - Gastrointestinal neoplasm [Not Recovered/Not Resolved]
  - Intestinal obstruction [Recovered/Resolved]
  - Surgery [Unknown]
  - Intestinal obstruction [Not Recovered/Not Resolved]
  - Gastrointestinal carcinoma [Not Recovered/Not Resolved]
  - Skin cancer [Recovered/Resolved]
  - Abdominal pain upper [Recovered/Resolved]
  - Body height decreased [Not Recovered/Not Resolved]
  - Back pain [Recovering/Resolving]

NARRATIVE: CASE EVENT DATE: 20221105
